FAERS Safety Report 25887825 (Version 1)
Quarter: 2025Q4

REPORT INFORMATION
  Report Type: Spontaneous
  Country: CN (occurrence: CN)
  Receive Date: 20251007
  Receipt Date: 20251007
  Transmission Date: 20260117
  Serious: Yes (Other)
  Sender: AMGEN
  Company Number: CN-AMGEN-CHNSP2025194828

PATIENT
  Age: 67 Year
  Sex: Female

DRUGS (2)
  1. XGEVA [Suspect]
     Active Substance: DENOSUMAB
     Indication: Diffuse large B-cell lymphoma
     Dosage: 120 MILLIGRAM, QD
     Route: 058
     Dates: start: 20250906, end: 20250906
  2. THALIDOMIDE [Suspect]
     Active Substance: THALIDOMIDE
     Indication: Diffuse large B-cell lymphoma
     Dosage: 200 MILLIGRAM, QD
     Route: 048
     Dates: start: 20250905, end: 20250905

REACTIONS (1)
  - Myelosuppression [Recovered/Resolved]

NARRATIVE: CASE EVENT DATE: 20250919
